FAERS Safety Report 8415888-7 (Version None)
Quarter: 2012Q2

REPORT INFORMATION
  Report Type: 
  Country: None (occurrence: None)
  Receive Date: 20120606
  Receipt Date: 20120524
  Transmission Date: 20120825
  Serious: Yes (Other)
  Sender: FDA-Public Use
  Company Number: GB-AMGEN-GBRSP2012018518

PATIENT
  Age: 62 Year
  Sex: Female
  Weight: 66.984 kg

DRUGS (7)
  1. COLECALCIFEROL [Concomitant]
     Dosage: 2 DF, BID
  2. ETORICOXIB [Concomitant]
     Dosage: 90 MG, 1X/DAY
  3. LANSOPRAZOLE [Concomitant]
     Dosage: 30 MG, 1X/DAY
  4. HYDROXYCHLOROQUINE SULFATE [Concomitant]
     Dosage: 200 MG, 2X/DAY
  5. RAMIPRIL [Concomitant]
     Dosage: 10 MG, 1X/DAY
  6. ENBREL [Suspect]
     Indication: RHEUMATOID ARTHRITIS
     Dosage: 50 MG, WEEKLY
     Route: 058
     Dates: start: 20111001
  7. FELODIPINE [Concomitant]
     Dosage: 10 MG, 1X/DAY

REACTIONS (9)
  - ABDOMINAL PAIN UPPER [None]
  - FATIGUE [None]
  - DIZZINESS [None]
  - PAIN IN EXTREMITY [None]
  - HYPERHIDROSIS [None]
  - INCREASED UPPER AIRWAY SECRETION [None]
  - ARTHRALGIA [None]
  - COUGH [None]
  - JOINT SWELLING [None]
